FAERS Safety Report 12856825 (Version 1)
Quarter: 2016Q4

REPORT INFORMATION
  Report Type: Spontaneous
  Country: US (occurrence: US)
  Receive Date: 20161018
  Receipt Date: 20161018
  Transmission Date: 20170207
  Serious: No
  Sender: FDA-Public Use
  Company Number: None

PATIENT
  Age: 65 Year
  Sex: Female
  Weight: 74.25 kg

DRUGS (5)
  1. MAGNESIUM [Concomitant]
     Active Substance: MAGNESIUM
  2. REFRESH TEARS [Suspect]
     Active Substance: CARBOXYMETHYLCELLULOSE SODIUM
     Indication: DRY EYE
     Dosage: ?          QUANTITY:100 SINGLE-DOSE VIAL;?
     Route: 047
     Dates: start: 20100101, end: 20161017
  3. STOOL SOFTENER (DOCUSATE CALCIUM) [Concomitant]
     Active Substance: DOCUSATE CALCIUM
  4. GREEN TEA EXTRACT [Concomitant]
  5. VITAMINS C + D [Concomitant]

REACTIONS (2)
  - Drug hypersensitivity [None]
  - Flushing [None]

NARRATIVE: CASE EVENT DATE: 20161017
